FAERS Safety Report 7581596-8 (Version None)
Quarter: 2011Q2

REPORT INFORMATION
  Report Type: 
  Country: None (occurrence: None)
  Receive Date: 20110629
  Receipt Date: 20110617
  Transmission Date: 20111010
  Serious: Yes (Hospitalization, Other)
  Sender: FDA-Public Use
  Company Number: US-ELI_LILLY_AND_COMPANY-US201105005129

PATIENT
  Age: 85 Year
  Sex: Female

DRUGS (8)
  1. LANTUS [Concomitant]
  2. INSULIN [Concomitant]
  3. METFORMIN HCL [Concomitant]
  4. ATENOLOL [Concomitant]
  5. FORTEO [Suspect]
     Indication: OSTEOPOROSIS
     Dosage: 20 UG, QD
     Dates: start: 20110401
  6. PRILOSEC [Concomitant]
  7. SIMVASTATIN [Concomitant]
  8. PENTOXIFYLLINE [Concomitant]
     Indication: CARDIOVASCULAR DISORDER

REACTIONS (3)
  - OSTEOMYELITIS [None]
  - IMPAIRED HEALING [None]
  - FEELING ABNORMAL [None]
